FAERS Safety Report 25983580 (Version 2)
Quarter: 2025Q4

REPORT INFORMATION
  Report Type: Spontaneous
  Country: US (occurrence: US)
  Receive Date: 20251031
  Receipt Date: 20251106
  Transmission Date: 20260117
  Serious: Yes (Hospitalization)
  Sender: AMGEN
  Company Number: US-AMGEN-USASP2025213366

PATIENT
  Age: 3 Year
  Sex: Male

DRUGS (2)
  1. BLINCYTO [Suspect]
     Active Substance: BLINATUMOMAB
     Indication: B precursor type acute leukaemia
     Dosage: 35 MICROGRAM, INITIALLY 96 HOUR BAG/THEN 7 DAY BAG
     Route: 040
     Dates: end: 20251025
  2. BLINCYTO [Suspect]
     Active Substance: BLINATUMOMAB
     Dosage: 35 MICROGRAM, INITIALLY 96 HOUR BAG/THEN 7 DAY BAG
     Route: 040
     Dates: start: 20251026

REACTIONS (3)
  - Product administration interrupted [Unknown]
  - Incorrect dose administered [Unknown]
  - Device connection issue [Unknown]

NARRATIVE: CASE EVENT DATE: 20251025
